FAERS Safety Report 8310497-2 (Version None)
Quarter: 2012Q2

REPORT INFORMATION
  Report Type: 
  Country: None (occurrence: None)
  Receive Date: 20120425
  Receipt Date: 20120417
  Transmission Date: 20120825
  Serious: Yes (Hospitalization, Other)
  Sender: FDA-Public Use
  Company Number: NO-ROXANE LABORATORIES, INC.-2012-RO-01085RO

PATIENT
  Age: 72 Year
  Sex: Female

DRUGS (1)
  1. RAMIPRIL [Suspect]
     Indication: HYPERTENSION
     Dosage: 5 MG

REACTIONS (2)
  - PNEUMONIA [None]
  - ANGIOEDEMA [None]
